FAERS Safety Report 9666068 (Version 1)
Quarter: 2013Q4

REPORT INFORMATION
  Report Type: Spontaneous
  Country: CN (occurrence: CN)
  Receive Date: 20131104
  Receipt Date: 20131104
  Transmission Date: 20140711
  Serious: Yes (Hospitalization)
  Sender: FDA-Public Use
  Company Number: PHHY2013CN123724

PATIENT
  Age: 53 Year
  Sex: Female
  Weight: 50 kg

DRUGS (4)
  1. DIOVAN [Suspect]
     Indication: HYPERTENSION
     Dosage: 80 MG, QD
     Route: 048
     Dates: start: 20120801, end: 20120930
  2. CARVEDILOL [Suspect]
     Dosage: 12.5 MG, Q12H
     Dates: start: 201208
  3. METOPROLOL [Suspect]
     Dosage: 47.5 MG, QD
     Dates: start: 201208
  4. METHIMAZOLE [Concomitant]
     Dosage: 10 MG, TID

REACTIONS (3)
  - Oropharyngeal pain [Recovered/Resolved]
  - Pyrexia [Recovered/Resolved]
  - Leukopenia [Recovered/Resolved]
